FAERS Safety Report 19075977 (Version 1)
Quarter: 2021Q1

REPORT INFORMATION
  Report Type: Spontaneous
  Country: US (occurrence: US)
  Receive Date: 20210331
  Receipt Date: 20210331
  Transmission Date: 20210420
  Serious: Yes (Other)
  Sender: FDA-Public Use
  Company Number: US-STRIDES ARCOLAB LIMITED-2021SP000471

PATIENT
  Age: 63 Year
  Sex: Female

DRUGS (4)
  1. IBUPROFEN. [Suspect]
     Active Substance: IBUPROFEN
     Indication: HEADACHE
     Dosage: 800 MILLIGRAM, TID, AS NEEDED
     Route: 048
  2. FULVESTRANT. [Concomitant]
     Active Substance: FULVESTRANT
     Indication: HER2 NEGATIVE BREAST CANCER
     Dosage: UNK
     Route: 048
  3. PALBOCICLIB [Suspect]
     Active Substance: PALBOCICLIB
     Indication: HER2 NEGATIVE BREAST CANCER
     Dosage: UNK
     Route: 048
  4. IBUPROFEN. [Suspect]
     Active Substance: IBUPROFEN
     Indication: BONE PAIN

REACTIONS (2)
  - Iron deficiency anaemia [Recovered/Resolved]
  - Haemorrhage [Unknown]
